FAERS Safety Report 25721705 (Version 8)
Quarter: 2025Q4

REPORT INFORMATION
  Report Type: Spontaneous
  Country: CA (occurrence: CA)
  Receive Date: 20250825
  Receipt Date: 20251029
  Transmission Date: 20260118
  Serious: Yes (Death, Hospitalization, Other)
  Sender: ASTELLAS
  Company Number: CA-PFIZER INC-PV202500092143

PATIENT
  Age: 69 Year
  Sex: Female
  Weight: 72 kg

DRUGS (6)
  1. PADCEV [Suspect]
     Active Substance: ENFORTUMAB VEDOTIN-EJFV
     Indication: Transitional cell carcinoma metastatic
     Dosage: 91.8 MG, CYCLIC DAY 1 AND DAY 8 OF 21-DAY CYCLE
     Route: 042
     Dates: start: 20250729
  2. PADCEV [Suspect]
     Active Substance: ENFORTUMAB VEDOTIN-EJFV
     Dosage: 91.8 MG, CYCLIC DAY 1 AND DAY 8 OF 21-DAY CYCLE
     Route: 042
     Dates: start: 20250806
  3. PADCEV [Suspect]
     Active Substance: ENFORTUMAB VEDOTIN-EJFV
     Dosage: 89.76 MG, CYCLIC DAY 1 AND DAY 8 OF 21-DAY CYCLE
     Route: 042
     Dates: start: 20250826
  4. PADCEV [Suspect]
     Active Substance: ENFORTUMAB VEDOTIN-EJFV
     Dosage: 91.8 MG, CYCLIC DAY 1 AND DAY 8 OF 21-DAY CYCLE
     Route: 042
     Dates: start: 20250902
  5. PADCEV [Suspect]
     Active Substance: ENFORTUMAB VEDOTIN-EJFV
     Dosage: 91.8 MG, CYCLIC DAY 1 AND DAY 8 OF 21-DAY CYCLE
     Route: 042
     Dates: start: 20250916
  6. KEYTRUDA [Concomitant]
     Active Substance: PEMBROLIZUMAB
     Indication: Product used for unknown indication
     Dosage: UNK
     Route: 065

REACTIONS (16)
  - Transitional cell carcinoma metastatic [Fatal]
  - Malignant neoplasm progression [Fatal]
  - Pulmonary oedema [Recovering/Resolving]
  - Dyspnoea [Unknown]
  - Oxygen saturation decreased [Unknown]
  - Heart rate increased [Unknown]
  - Pain [Unknown]
  - Mucosal inflammation [Unknown]
  - Oedema peripheral [Not Recovered/Not Resolved]
  - Alopecia [Not Recovered/Not Resolved]
  - Fatigue [Not Recovered/Not Resolved]
  - Dry mouth [Not Recovered/Not Resolved]
  - Dyspnoea exertional [Not Recovered/Not Resolved]
  - Erythema [Not Recovered/Not Resolved]
  - Hyposmia [Not Recovered/Not Resolved]
  - Hypotension [Unknown]

NARRATIVE: CASE EVENT DATE: 20250101
